FAERS Safety Report 19854326 (Version 3)
Quarter: 2021Q4

REPORT INFORMATION
  Report Type: Report from Study
  Country: ES (occurrence: None)
  Receive Date: 20210920
  Receipt Date: 20211215
  Transmission Date: 20220303
  Serious: Yes (Death)
  Sender: FDA-Public Use
  Company Number: ES-ROCHE-2910012

PATIENT

DRUGS (34)
  1. TOCILIZUMAB [Suspect]
     Active Substance: TOCILIZUMAB
     Indication: COVID-19
     Dosage: FIRST DOSE 600 MG; SECOND DOSE 600 MG. PATIENTS LESS THAN 80 KG: FIRST DOSE 600 MG; SECOND DOSE 400
     Route: 042
     Dates: start: 20200401
  2. TOCILIZUMAB [Suspect]
     Active Substance: TOCILIZUMAB
     Indication: Cytokine storm
  3. PANTOPRAZOLE [Concomitant]
     Active Substance: PANTOPRAZOLE
     Indication: Gastrointestinal disorder prophylaxis
     Dates: start: 20200329, end: 20200526
  4. METOCLOPRAMIDE [Concomitant]
     Active Substance: METOCLOPRAMIDE
     Indication: Prophylaxis of nausea and vomiting
     Dates: start: 20200502, end: 20200522
  5. INSULIN NOS [Concomitant]
     Active Substance: INSULIN NOS
     Dates: start: 20200401, end: 20200526
  6. ENOXAPARIN [Concomitant]
     Active Substance: ENOXAPARIN
     Dates: start: 20200404, end: 20200526
  7. NOREPINEPHRINE [Concomitant]
     Active Substance: NOREPINEPHRINE
     Indication: Hypotension
     Dates: start: 20200401, end: 20200425
  8. CLONIDINA [Concomitant]
     Indication: Sedation
     Dates: start: 20200409, end: 20200526
  9. FUROSEMIDE [Concomitant]
     Active Substance: FUROSEMIDE
     Dates: start: 20200402, end: 20200526
  10. ATENOLOL [Concomitant]
     Active Substance: ATENOLOL
     Indication: Tachycardia
     Dates: start: 20200505, end: 20200526
  11. AMLODIPINE BESYLATE [Concomitant]
     Active Substance: AMLODIPINE BESYLATE
     Dates: start: 20200505, end: 20200526
  12. CAPTOPRIL [Concomitant]
     Active Substance: CAPTOPRIL
     Dates: start: 20200425, end: 20200521
  13. METHYLPREDNISOLONE [Concomitant]
     Active Substance: METHYLPREDNISOLONE
     Dates: start: 20200330, end: 20200420
  14. LEVOTHYROXINE [Concomitant]
     Active Substance: LEVOTHYROXINE
     Indication: Hypothyroidism
     Dates: start: 20180620
  15. PIPERACILLIN SODIUM\TAZOBACTAM SODIUM [Concomitant]
     Active Substance: PIPERACILLIN SODIUM\TAZOBACTAM SODIUM
     Indication: Pyrexia
     Dates: start: 20200330, end: 20200409
  16. PIPERACILLIN SODIUM\TAZOBACTAM SODIUM [Concomitant]
     Active Substance: PIPERACILLIN SODIUM\TAZOBACTAM SODIUM
     Dates: start: 20200428, end: 20200502
  17. PIPERACILLIN SODIUM\TAZOBACTAM SODIUM [Concomitant]
     Active Substance: PIPERACILLIN SODIUM\TAZOBACTAM SODIUM
     Dates: start: 20200519, end: 20200522
  18. MEROPENEM [Concomitant]
     Active Substance: MEROPENEM
     Indication: Pyrexia
     Dates: start: 20200413, end: 20200418
  19. MEROPENEM [Concomitant]
     Active Substance: MEROPENEM
     Dates: start: 20200522, end: 20200526
  20. COTRIMOXAZOLE [Concomitant]
     Active Substance: SULFAMETHOXAZOLE\TRIMETHOPRIM
     Dates: start: 20200508, end: 20200526
  21. LEVOFLOXACIN [Concomitant]
     Active Substance: LEVOFLOXACIN
     Dates: start: 20200511, end: 20200521
  22. VANCOMYCIN [Concomitant]
     Active Substance: VANCOMYCIN
     Indication: Pyrexia
     Dates: start: 20200406, end: 20200412
  23. VANCOMYCIN [Concomitant]
     Active Substance: VANCOMYCIN
     Dates: start: 20200429, end: 20200506
  24. DAPTOMYCIN [Concomitant]
     Active Substance: DAPTOMYCIN
     Dates: start: 20200413, end: 20200417
  25. DAPTOMYCIN [Concomitant]
     Active Substance: DAPTOMYCIN
     Dates: start: 20200522, end: 20200526
  26. FLUCONAZOLE [Concomitant]
     Active Substance: FLUCONAZOLE
     Indication: Candida infection
     Dates: start: 20200429, end: 20200511
  27. ANIDULAFUNGIN [Concomitant]
     Active Substance: ANIDULAFUNGIN
     Indication: Candida infection
     Dates: start: 20200415, end: 20200425
  28. ANIDULAFUNGIN [Concomitant]
     Active Substance: ANIDULAFUNGIN
     Indication: Acute respiratory distress syndrome
  29. PIRFENIDONE [Concomitant]
     Active Substance: PIRFENIDONE
     Indication: Pulmonary fibrosis
     Dates: start: 20200512, end: 20200526
  30. METAMIZOLE [Concomitant]
     Active Substance: METAMIZOLE
     Indication: Pyrexia
     Dates: start: 20200520, end: 20200526
  31. ACETAMINOPHEN [Concomitant]
     Active Substance: ACETAMINOPHEN
     Indication: Pyrexia
     Dates: start: 20200401, end: 20200526
  32. ACETAMINOPHEN [Concomitant]
     Active Substance: ACETAMINOPHEN
     Indication: Prophylaxis
  33. DEXMEDETOMIDINA [Concomitant]
     Indication: Sedation
     Dates: start: 20200421, end: 20200506
  34. ACETYLCYSTEINE [Concomitant]
     Active Substance: ACETYLCYSTEINE
     Dates: start: 20200401, end: 20200526

REACTIONS (1)
  - Acute respiratory distress syndrome [Fatal]

NARRATIVE: CASE EVENT DATE: 20200519
